FAERS Safety Report 12456400 (Version 4)
Quarter: 2016Q3

REPORT INFORMATION
  Report Type: Report from Study
  Country: BR (occurrence: BR)
  Receive Date: 20160610
  Receipt Date: 20160712
  Transmission Date: 20161109
  Serious: Yes (Death, Life-Threatening, Hospitalization, Disabling, Other)
  Sender: FDA-Public Use
  Company Number: BR-ALEXION PHARMACEUTICALS INC-A201604162

PATIENT
  Age: 80 Year
  Sex: Male

DRUGS (2)
  1. SOLIRIS [Suspect]
     Active Substance: ECULIZUMAB
     Dosage: 900 MG, UNK
     Route: 042
  2. SOLIRIS [Suspect]
     Active Substance: ECULIZUMAB
     Indication: HAEMOLYTIC URAEMIC SYNDROME
     Dosage: 300 MG, UNK
     Route: 042
     Dates: start: 20160517

REACTIONS (13)
  - Epistaxis [Unknown]
  - Disseminated intravascular coagulation [Unknown]
  - Blood lactate dehydrogenase increased [Not Recovered/Not Resolved]
  - Pyrexia [Fatal]
  - Cardiac arrest [Fatal]
  - Therapeutic response decreased [Unknown]
  - Respiratory tract haemorrhage [Unknown]
  - Inappropriate schedule of drug administration [Recovered/Resolved]
  - Sepsis [Fatal]
  - Histiocytosis haematophagic [Fatal]
  - Infection [Fatal]
  - Pancytopenia [Fatal]
  - General physical health deterioration [Unknown]

NARRATIVE: CASE EVENT DATE: 20160529
